FAERS Safety Report 14304423 (Version 2)
Quarter: 2018Q1

REPORT INFORMATION
  Report Type: Report from Study
  Country: US (occurrence: US)
  Receive Date: 20171219
  Receipt Date: 20180106
  Transmission Date: 20180509
  Serious: Yes (Hospitalization, Other)
  Sender: FDA-Public Use
  Company Number: PHHY2017US163437

PATIENT
  Age: 32 Year
  Sex: Female
  Weight: 53.1 kg

DRUGS (8)
  1. ALGIN [Concomitant]
     Indication: PROBIOTIC THERAPY
     Dosage: 4 MG, UNK
     Route: 065
     Dates: start: 2017
  2. METAMUCIL [Concomitant]
     Active Substance: PLANTAGO SEED
     Indication: ABDOMINAL DISCOMFORT
     Dosage: 3.12 G, UNK
     Route: 065
     Dates: start: 2017
  3. AMANTADINE. [Concomitant]
     Active Substance: AMANTADINE HYDROCHLORIDE
     Indication: FATIGUE
     Dosage: UNK
     Route: 065
     Dates: start: 20141215, end: 20160114
  4. VITAMIN D3 [Concomitant]
     Active Substance: CHOLECALCIFEROL
     Indication: PRODUCT USED FOR UNKNOWN INDICATION
     Dosage: 1000 IU, UNK
     Route: 065
     Dates: start: 2014
  5. MULTIVITAMINS [Concomitant]
     Active Substance: VITAMINS
     Indication: PRODUCT USED FOR UNKNOWN INDICATION
     Dosage: 1 DF, UNK
     Route: 065
     Dates: start: 201408
  6. GABAPENTIN. [Concomitant]
     Active Substance: GABAPENTIN
     Indication: NEURALGIA
     Dosage: 300 MG, TID
     Route: 065
     Dates: start: 2008
  7. ZOLOFT [Concomitant]
     Active Substance: SERTRALINE HYDROCHLORIDE
     Indication: DEPRESSION
     Dosage: 25 MG, QD
     Route: 065
     Dates: start: 20151211
  8. GILENYA [Suspect]
     Active Substance: FINGOLIMOD HYDROCHLORIDE
     Indication: RELAPSING-REMITTING MULTIPLE SCLEROSIS
     Dosage: 0.5 MG, UNK
     Route: 048
     Dates: start: 20170221, end: 20171030

REACTIONS (14)
  - Movement disorder [Unknown]
  - Urine analysis abnormal [Unknown]
  - Asthenia [Recovering/Resolving]
  - Dysstasia [Unknown]
  - Urine ketone body present [Unknown]
  - Multiple sclerosis relapse [Recovering/Resolving]
  - Paraesthesia [Recovering/Resolving]
  - Urine leukocyte esterase positive [Unknown]
  - Paresis [Recovering/Resolving]
  - Urine abnormality [Unknown]
  - Bacterial test positive [Unknown]
  - Muscular weakness [Unknown]
  - White blood cell count decreased [Unknown]
  - Lymphocyte count decreased [Unknown]

NARRATIVE: CASE EVENT DATE: 20171024
